FAERS Safety Report 21339039 (Version 1)
Quarter: 2022Q3

REPORT INFORMATION
  Report Type: Spontaneous
  Country: US (occurrence: US)
  Receive Date: 20220915
  Receipt Date: 20220915
  Transmission Date: 20221027
  Serious: No
  Sender: FDA-Public Use
  Company Number: US-VIVUS, Inc.-2022V1000021

PATIENT
  Age: 61 Year
  Sex: Female

DRUGS (3)
  1. QSYMIA [Suspect]
     Active Substance: PHENTERMINE HYDROCHLORIDE\TOPIRAMATE
     Indication: Weight decreased
     Route: 048
  2. QSYMIA [Suspect]
     Active Substance: PHENTERMINE HYDROCHLORIDE\TOPIRAMATE
     Indication: Weight decreased
     Route: 048
  3. CORTISONE\HYDROCORTISONE [Concomitant]
     Active Substance: CORTISONE\HYDROCORTISONE
     Indication: Spinal stenosis
     Dosage: 6 SHOTS/INTO THE BONE
     Dates: start: 202109, end: 202109

REACTIONS (3)
  - Weight increased [Not Recovered/Not Resolved]
  - Spinal stenosis [Not Recovered/Not Resolved]
  - Body height decreased [Unknown]

NARRATIVE: CASE EVENT DATE: 20210901
